FAERS Safety Report 19626816 (Version 2)
Quarter: 2021Q3

REPORT INFORMATION
  Report Type: Report from Study
  Country: CA (occurrence: CA)
  Receive Date: 20210729
  Receipt Date: 20210817
  Transmission Date: 20211014
  Serious: Yes (Other)
  Sender: FDA-Public Use
  Company Number: CA-TAKEDA-2021TUS047139

PATIENT
  Age: 69 Year
  Sex: Male

DRUGS (11)
  1. GLICLAZIDE [Concomitant]
     Active Substance: GLICLAZIDE
     Dosage: UNK
  2. EZETIMIBE. [Concomitant]
     Active Substance: EZETIMIBE
     Dosage: UNK
  3. ACYCLOVIR. [Concomitant]
     Active Substance: ACYCLOVIR
     Dosage: UNK
  4. MEZAVANT [Concomitant]
     Active Substance: MESALAMINE
     Dosage: UNK
  5. VEDOLIZUMAB [Suspect]
     Active Substance: VEDOLIZUMAB
     Dosage: 300 MILLIGRAM, Q4WEEKS
     Route: 042
     Dates: start: 20210813
  6. CANDESARTAN. [Concomitant]
     Active Substance: CANDESARTAN
     Dosage: UNK
  7. CENTRUM [Concomitant]
     Active Substance: VITAMINS
     Dosage: UNK
  8. TYLENOL WITH CODEINE [Concomitant]
     Active Substance: ACETAMINOPHEN\CODEINE PHOSPHATE
     Dosage: UNK
  9. VEDOLIZUMAB [Suspect]
     Active Substance: VEDOLIZUMAB
     Indication: COLITIS ULCERATIVE
     Dosage: 300 MILLIGRAM
     Route: 042
     Dates: start: 20201024
  10. VIAGRA [Concomitant]
     Active Substance: SILDENAFIL CITRATE
     Dosage: UNK
  11. FLEXERIL [Concomitant]
     Active Substance: CYCLOBENZAPRINE HYDROCHLORIDE
     Dosage: UNK

REACTIONS (2)
  - Colitis ulcerative [Not Recovered/Not Resolved]
  - Off label use [Unknown]

NARRATIVE: CASE EVENT DATE: 20210813
